FAERS Safety Report 5718080-X (Version None)
Quarter: 2008Q2

REPORT INFORMATION
  Report Type: 
  Country: None (occurrence: None)
  Receive Date: 20080425
  Receipt Date: 20080414
  Transmission Date: 20081010
  Serious: Yes (Death, Other)
  Sender: FDA-Public Use
  Company Number: US-MERCK-0804USA03240

PATIENT
  Age: 11 Year
  Sex: Male

DRUGS (2)
  1. SINGULAIR [Suspect]
     Indication: ASTHMA
     Route: 048
     Dates: end: 20040616
  2. SINGULAIR [Suspect]
     Route: 048
     Dates: start: 20040616, end: 20071002

REACTIONS (6)
  - ATTENTION DEFICIT/HYPERACTIVITY DISORDER [None]
  - COMPLETED SUICIDE [None]
  - DYSTHYMIC DISORDER [None]
  - GENERALISED ANXIETY DISORDER [None]
  - MAJOR DEPRESSION [None]
  - SUICIDAL IDEATION [None]
